FAERS Safety Report 17713932 (Version 1)
Quarter: 2020Q2

REPORT INFORMATION
  Report Type: Spontaneous
  Country: US (occurrence: US)
  Receive Date: 20200427
  Receipt Date: 20200427
  Transmission Date: 20200714
  Serious: Yes (Hospitalization)
  Sender: FDA-Public Use
  Company Number: None

PATIENT
  Age: 62 Year
  Sex: Female
  Weight: 96.62 kg

DRUGS (8)
  1. ONDANSETRON [Concomitant]
     Active Substance: ONDANSETRON
  2. ACYCLOVIR 400MG [Concomitant]
     Active Substance: ACYCLOVIR
  3. XPOVIO [Suspect]
     Active Substance: SELINEXOR
     Indication: PLASMA CELL MYELOMA
     Route: 048
     Dates: start: 20191127, end: 20200425
  4. KYPROLI S [Concomitant]
  5. ATOVAQUONE 750MG35ML [Concomitant]
  6. GRANISETRON [Concomitant]
     Active Substance: GRANISETRON
  7. DEXAMETHASONE 4MG [Concomitant]
     Active Substance: DEXAMETHASONE
  8. VITAMIN D3 [Concomitant]
     Active Substance: CHOLECALCIFEROL

REACTIONS (3)
  - Red blood cell count decreased [None]
  - Therapy interrupted [None]
  - Platelet count decreased [None]

NARRATIVE: CASE EVENT DATE: 20200425
